FAERS Safety Report 4812591-7 (Version None)
Quarter: 2005Q4

REPORT INFORMATION
  Report Type: 
  Country: None (occurrence: None)
  Receive Date: 20051028
  Receipt Date: 20041101
  Transmission Date: 20060501
  Serious: No
  Sender: FDA-Public Use
  Company Number: US-GLAXOSMITHKLINE-A0532079A

PATIENT
  Age: 57 Year
  Sex: Female

DRUGS (5)
  1. ADVAIR DISKUS 100/50 [Suspect]
     Indication: ASTHMA
     Dosage: 1PUFF TWICE PER DAY
     Route: 055
     Dates: start: 20010401
  2. ARIMIDEX [Concomitant]
  3. EFFEXOR [Concomitant]
  4. VENTOLIN [Concomitant]
  5. XANAX [Concomitant]

REACTIONS (4)
  - CHEST PAIN [None]
  - DYSPHONIA [None]
  - DYSPNOEA [None]
  - PHARMACEUTICAL PRODUCT COMPLAINT [None]
